FAERS Safety Report 12084594 (Version 2)
Quarter: 2016Q2

REPORT INFORMATION
  Report Type: Spontaneous
  Country: US (occurrence: US)
  Receive Date: 20160217
  Receipt Date: 20160415
  Transmission Date: 20160815
  Serious: No
  Sender: FDA-Public Use
  Company Number: US-PFIZER INC-2016094990

PATIENT
  Age: 76 Year
  Sex: Male
  Weight: 72.57 kg

DRUGS (4)
  1. ADVIL [Suspect]
     Active Substance: IBUPROFEN
     Indication: NASAL MUCOSAL DISORDER
  2. ADVIL [Suspect]
     Active Substance: IBUPROFEN
     Indication: PHARYNGEAL PARAESTHESIA
  3. IBUPROFEN. [Suspect]
     Active Substance: IBUPROFEN
     Dosage: UNK
  4. ADVIL [Suspect]
     Active Substance: IBUPROFEN
     Indication: NASOPHARYNGITIS
     Dosage: 200 MG, AS NEEDED (TWO 200MG TABLETS BY MOUTH AS NEEDED, NO MORE THAN 4 A DAY)
     Route: 048
     Dates: start: 201602

REACTIONS (4)
  - Dyspepsia [Unknown]
  - Drug ineffective [Not Recovered/Not Resolved]
  - Wrong technique in product usage process [Unknown]
  - Throat irritation [Unknown]

NARRATIVE: CASE EVENT DATE: 201602
